FAERS Safety Report 5285787-0 (Version None)
Quarter: 2007Q1

REPORT INFORMATION
  Report Type: 
  Country: None (occurrence: None)
  Receive Date: 20070126
  Receipt Date: 20061127
  Transmission Date: 20070707
  Serious: No
  Sender: FDA-Public Use
  Company Number: 2006CT001079

PATIENT
  Age: 64 Year
  Sex: Female
  Weight: 109 kg

DRUGS (10)
  1. VENTAVIS [Suspect]
     Indication: PULMONARY HYPERTENSION
     Dosage: 5 UG;6XD;INH
     Route: 055
     Dates: start: 20060905
  2. NITROFURANTOIN [Concomitant]
  3. LASIX [Concomitant]
  4. WARFARIN SODIUM [Concomitant]
  5. SILDENAFIL CITRATE [Concomitant]
  6. NEURONTIN [Concomitant]
  7. QUININE [Concomitant]
  8. IBUPROFEN [Concomitant]
  9. SPIRONOLACTONE [Concomitant]
  10. KLOR-CON [Concomitant]

REACTIONS (3)
  - GLOSSODYNIA [None]
  - ORAL PAIN [None]
  - PHARYNGOLARYNGEAL PAIN [None]
